FAERS Safety Report 13646895 (Version 1)
Quarter: 2017Q2

REPORT INFORMATION
  Report Type: Spontaneous
  Country: US (occurrence: US)
  Receive Date: 20170613
  Receipt Date: 20170613
  Transmission Date: 20170830
  Serious: Yes (Other)
  Sender: FDA-Public Use
  Company Number: None

PATIENT
  Age: 85 Year
  Sex: Female
  Weight: 83.99 kg

DRUGS (9)
  1. LISINOPRIL. [Concomitant]
     Active Substance: LISINOPRIL
  2. TYLENOL [Concomitant]
     Active Substance: ACETAMINOPHEN
  3. LOVASTATIN. [Concomitant]
     Active Substance: LOVASTATIN
  4. GABAPENTIN. [Concomitant]
     Active Substance: GABAPENTIN
  5. IMODIUM [Concomitant]
     Active Substance: LOPERAMIDE HYDROCHLORIDE
  6. RANITIDINE. [Concomitant]
     Active Substance: RANITIDINE
  7. FUROSEMIDE. [Concomitant]
     Active Substance: FUROSEMIDE
  8. ATENOLOL. [Concomitant]
     Active Substance: ATENOLOL
  9. CLOPIDOGREL-GENERIC FOR PLAVIS-75MG TABLET [Suspect]
     Active Substance: CLOPIDOGREL BISULFATE
     Indication: ANTICOAGULANT THERAPY
     Route: 048
     Dates: start: 20170330, end: 20170401

REACTIONS (5)
  - Walking aid user [None]
  - Arthralgia [None]
  - Gait disturbance [None]
  - Haemarthrosis [None]
  - Pain [None]

NARRATIVE: CASE EVENT DATE: 20170401
